FAERS Safety Report 13384974 (Version 1)
Quarter: 2017Q1

REPORT INFORMATION
  Report Type: Spontaneous
  Country: US (occurrence: US)
  Receive Date: 20170329
  Receipt Date: 20170329
  Transmission Date: 20170429
  Serious: Yes (Hospitalization, Other)
  Sender: FDA-Public Use
  Company Number: US-ELI_LILLY_AND_COMPANY-US201608000504

PATIENT
  Age: 45 Year
  Sex: Female

DRUGS (3)
  1. CYMBALTA [Suspect]
     Active Substance: DULOXETINE HYDROCHLORIDE
     Indication: DEPRESSION
     Dosage: UNK, UNKNOWN
     Route: 048
     Dates: end: 20160217
  2. TRAZODONE [Suspect]
     Active Substance: TRAZODONE HYDROCHLORIDE
     Indication: INSOMNIA
     Dosage: 100 MG, PRN
     Route: 048
     Dates: end: 20160217
  3. CYMBALTA [Suspect]
     Active Substance: DULOXETINE HYDROCHLORIDE
     Indication: ANXIETY
     Dosage: UNK, UNKNOWN
     Route: 048
     Dates: start: 20160223

REACTIONS (25)
  - Mood swings [Unknown]
  - Paraesthesia [Unknown]
  - Vertigo [Unknown]
  - Headache [Unknown]
  - Schizophrenia [Unknown]
  - Hypomania [Unknown]
  - Dizziness [Unknown]
  - Suicidal ideation [Recovering/Resolving]
  - Self-injurious ideation [Unknown]
  - Mental disorder [Recovering/Resolving]
  - Agitation [Unknown]
  - Insomnia [Recovered/Resolved]
  - Diarrhoea [Unknown]
  - Fatigue [Unknown]
  - Hyperhidrosis [Unknown]
  - Lethargy [Unknown]
  - Irritability [Unknown]
  - Drug withdrawal syndrome [Unknown]
  - Suicide attempt [Unknown]
  - Panic attack [Unknown]
  - Tinnitus [Unknown]
  - Nausea [Unknown]
  - Hallucination, auditory [Recovering/Resolving]
  - Depression [Recovering/Resolving]
  - Vomiting [Unknown]

NARRATIVE: CASE EVENT DATE: 201602
